FAERS Safety Report 7795661-3 (Version None)
Quarter: 2011Q4

REPORT INFORMATION
  Report Type: 
  Country: None (occurrence: None)
  Receive Date: 20111004
  Receipt Date: 20110928
  Transmission Date: 20120403
  Serious: Yes (Hospitalization)
  Sender: FDA-Public Use
  Company Number: FR-GLAXOSMITHKLINE-B0751068A

PATIENT
  Sex: Female

DRUGS (7)
  1. RABEPRAZOLE SODIUM [Concomitant]
  2. LEXOMIL [Suspect]
     Indication: PRODUCT USED FOR UNKNOWN INDICATION
     Route: 048
     Dates: start: 20110801, end: 20110819
  3. OLMESARTAN MEDOXOMIL [Concomitant]
  4. PAROXETINE HCL [Suspect]
     Indication: PRODUCT USED FOR UNKNOWN INDICATION
     Dosage: 20MG UNKNOWN
     Route: 048
     Dates: start: 20110401, end: 20110819
  5. MODOPAR [Suspect]
     Indication: PRODUCT USED FOR UNKNOWN INDICATION
     Dosage: 62.5MG THREE TIMES PER DAY
     Route: 048
     Dates: start: 20110401, end: 20110819
  6. STRESAM [Suspect]
     Indication: PRODUCT USED FOR UNKNOWN INDICATION
     Route: 048
     Dates: start: 20110801, end: 20110819
  7. ESCITALOPRAM OXALATE [Suspect]
     Indication: PRODUCT USED FOR UNKNOWN INDICATION
     Route: 048
     Dates: start: 20110801, end: 20110819

REACTIONS (6)
  - VOMITING [None]
  - CONFUSIONAL STATE [None]
  - SLEEP DISORDER [None]
  - TREMOR [None]
  - NAUSEA [None]
  - MALAISE [None]
